FAERS Safety Report 5156843-2 (Version None)
Quarter: 2006Q4

REPORT INFORMATION
  Report Type: 
  Country: None (occurrence: None)
  Receive Date: 20061115
  Receipt Date: 20061106
  Transmission Date: 20070319
  Serious: Yes (Hospitalization, Other)
  Sender: FDA-Public Use
  Company Number: 2006108962

PATIENT
  Age: 53 Year
  Sex: Female

DRUGS (4)
  1. NORVASC [Suspect]
     Indication: HYPERTENSION
     Dosage: 5 MG (5 MG, 1 IN 1 D), ORAL
     Route: 048
     Dates: start: 20060717, end: 20060906
  2. LEFTOSE (LYSOZYME) [Suspect]
     Indication: NASOPHARYNGITIS
     Dosage: 3 TABLETS (3 IN 1 D), ORAL
     Route: 048
     Dates: start: 20060301, end: 20060906
  3. MUCODYNE (CARBOCISTEINE) [Concomitant]
  4. COLDRIN (CLOFEDANOL HYDROCHLORIDE) [Concomitant]

REACTIONS (4)
  - EOSINOPHILIC PNEUMONIA [None]
  - HYPEREOSINOPHILIC SYNDROME [None]
  - HYPOAESTHESIA [None]
  - PERICARDIAL EFFUSION [None]
